FAERS Safety Report 13572118 (Version 2)
Quarter: 2017Q3

REPORT INFORMATION
  Report Type: Spontaneous
  Country: US (occurrence: US)
  Receive Date: 20170523
  Receipt Date: 20170920
  Transmission Date: 20171127
  Serious: Yes (Other)
  Sender: FDA-Public Use
  Company Number: US-WEST-WARD PHARMACEUTICALS CORP.-US-H14001-17-01528

PATIENT
  Age: 44 Year
  Sex: Female

DRUGS (22)
  1. AMLODIPINE [Concomitant]
     Active Substance: AMLODIPINE BESYLATE
     Indication: PRODUCT USED FOR UNKNOWN INDICATION
     Route: 065
     Dates: start: 20130923
  2. ASKP1240 [Suspect]
     Active Substance: BLESELUMAB
     Route: 042
     Dates: start: 20131007, end: 20131007
  3. ASKP1240 [Suspect]
     Active Substance: BLESELUMAB
     Route: 042
     Dates: start: 20131104, end: 20131104
  4. ASKP1240 [Suspect]
     Active Substance: BLESELUMAB
     Indication: RENAL TRANSPLANT
     Route: 042
     Dates: start: 20130909, end: 20130909
  5. ASKP1240 [Suspect]
     Active Substance: BLESELUMAB
     Route: 042
     Dates: start: 20140206, end: 20140206
  6. ASKP1240 [Suspect]
     Active Substance: BLESELUMAB
     Route: 042
     Dates: start: 20140306, end: 20140306
  7. FAMOTIDINE. [Concomitant]
     Active Substance: FAMOTIDINE
     Indication: PRODUCT USED FOR UNKNOWN INDICATION
     Route: 065
     Dates: start: 20130910
  8. DAPSONE. [Suspect]
     Active Substance: DAPSONE
     Indication: INFECTION PROPHYLAXIS
     Route: 048
     Dates: start: 20130912, end: 20131022
  9. MYCOPHENOLATE MOFETIL. [Suspect]
     Active Substance: MYCOPHENOLATE MOFETIL
     Indication: RENAL TRANSPLANT
     Route: 048
     Dates: start: 20130910, end: 20140306
  10. ASKP1240 [Suspect]
     Active Substance: BLESELUMAB
     Route: 042
     Dates: start: 20130923, end: 20130923
  11. CEPHALEXIN. [Concomitant]
     Active Substance: CEPHALEXIN
     Indication: PRODUCT USED FOR UNKNOWN INDICATION
     Route: 065
     Dates: start: 20130910
  12. ASPIRIN. [Concomitant]
     Active Substance: ASPIRIN
     Indication: PRODUCT USED FOR UNKNOWN INDICATION
     Route: 065
     Dates: start: 20130913
  13. ASKP1240 [Suspect]
     Active Substance: BLESELUMAB
     Route: 042
     Dates: start: 20131021, end: 20131021
  14. ASKP1240 [Suspect]
     Active Substance: BLESELUMAB
     Route: 042
     Dates: start: 20131209, end: 20131209
  15. ACETAMINOPHEN W/HYDROCODONE [Concomitant]
     Active Substance: ACETAMINOPHEN\HYDROCODONE
     Indication: PRODUCT USED FOR UNKNOWN INDICATION
     Route: 065
     Dates: start: 20130912, end: 20130922
  16. VALGANCICLOVIR. [Concomitant]
     Active Substance: VALGANCICLOVIR
     Indication: PRODUCT USED FOR UNKNOWN INDICATION
     Route: 065
     Dates: start: 20130913, end: 20140309
  17. ASKP1240 [Suspect]
     Active Substance: BLESELUMAB
     Route: 042
     Dates: start: 20131118, end: 20131118
  18. ASKP1240 [Suspect]
     Active Substance: BLESELUMAB
     Route: 042
     Dates: start: 20140108, end: 20140108
  19. BASILIXIMAB [Suspect]
     Active Substance: BASILIXIMAB
     Indication: RENAL TRANSPLANT
     Route: 042
     Dates: start: 20130909, end: 20130909
  20. ASKP1240 [Suspect]
     Active Substance: BLESELUMAB
     Route: 042
     Dates: start: 20130916, end: 20130916
  21. BASILIXIMAB [Suspect]
     Active Substance: BASILIXIMAB
     Route: 042
     Dates: start: 20130913, end: 20130913
  22. ATOMOXETINE. [Concomitant]
     Active Substance: ATOMOXETINE HYDROCHLORIDE
     Indication: PRODUCT USED FOR UNKNOWN INDICATION
     Route: 065
     Dates: start: 20130911

REACTIONS (1)
  - Haemolytic anaemia [Recovered/Resolved]

NARRATIVE: CASE EVENT DATE: 20131021
